FAERS Safety Report 9244769 (Version 1)
Quarter: 2013Q1

REPORT INFORMATION
  Report Type: Spontaneous
  Country: US (occurrence: None)
  Receive Date: 20121130
  Receipt Date: 20121130
  Transmission Date: 20140127
  Serious: Yes (Other)
  Sender: FDA-Public Use
  Company Number: PHEH2012US014488

PATIENT
  Age: 58 Year
  Sex: Female

DRUGS (2)
  1. LAMISIL [Suspect]
  2. ESTRADIOL [Suspect]

REACTIONS (1)
  - Stevens-Johnson syndrome [None]
